FAERS Safety Report 9548791 (Version 1)
Quarter: 2013Q3

REPORT INFORMATION
  Report Type: Spontaneous
  Country: GB (occurrence: None)
  Receive Date: 20130919
  Receipt Date: 20130919
  Transmission Date: 20140515
  Serious: Yes (Other)
  Sender: FDA-Public Use
  Company Number: GER/GER/13/0034554

PATIENT
  Sex: Male
  Weight: 3.25 kg

DRUGS (5)
  1. LAMOTRIGINE [Suspect]
     Indication: PRODUCT USED FOR UNKNOWN INDICATION
     Route: 064
     Dates: start: 20090619, end: 20100316
  2. VENLAFAXINE HYDROCHLORIDE [Suspect]
     Indication: PRODUCT USED FOR UNKNOWN INDICATION
     Route: 064
     Dates: start: 20090619, end: 20100316
  3. PROMETHAZINE [Suspect]
     Indication: PRODUCT USED FOR UNKNOWN INDICATION
     Route: 064
     Dates: start: 20090619, end: 20100316
  4. LEVOTHYROXINE SODIUM (LEVOTHYROXINE) [Concomitant]
  5. FOLIO FORTE (FOLIO) [Concomitant]

REACTIONS (5)
  - Bradycardia [None]
  - Neonatal respiratory distress syndrome [None]
  - Drug withdrawal syndrome neonatal [None]
  - Caesarean section [None]
  - Maternal drugs affecting foetus [None]
